FAERS Safety Report 21379637 (Version 1)
Quarter: 2022Q3

REPORT INFORMATION
  Report Type: Spontaneous
  Country: CN (occurrence: CN)
  Receive Date: 20220927
  Receipt Date: 20220927
  Transmission Date: 20221027
  Serious: Yes (Death)
  Sender: FDA-Public Use
  Company Number: CN-SUN PHARMACEUTICAL INDUSTRIES LTD-2022R1-355670

PATIENT
  Age: 24 Day
  Sex: Male

DRUGS (13)
  1. EPINEPHRINE [Suspect]
     Active Substance: EPINEPHRINE
     Indication: Mitochondrial encephalomyopathy
     Dosage: UNK
     Route: 042
  2. CEFOPERAZONE [Suspect]
     Active Substance: CEFOPERAZONE
     Indication: Mitochondrial encephalomyopathy
     Route: 065
  3. CEFTAZIDIME [Suspect]
     Active Substance: CEFTAZIDIME
     Indication: Mitochondrial encephalomyopathy
     Dosage: UNK
     Route: 042
  4. FUROSEMIDE [Suspect]
     Active Substance: FUROSEMIDE
     Indication: Mitochondrial encephalomyopathy
     Dosage: UNK
     Route: 048
  5. LEVOCARNITINE [Suspect]
     Active Substance: LEVOCARNITINE
     Indication: Mitochondrial encephalomyopathy
     Dosage: UNK
     Route: 048
  6. MEROPENEM [Suspect]
     Active Substance: MEROPENEM
     Indication: Mitochondrial encephalomyopathy
     Route: 065
  7. PYRIDOXINE [Suspect]
     Active Substance: PYRIDOXINE
     Indication: Mitochondrial encephalomyopathy
     Route: 065
  8. SPIRONOLACTONE [Suspect]
     Active Substance: SPIRONOLACTONE
     Indication: Mitochondrial encephalomyopathy
     Dosage: UNK
     Route: 065
  9. VANCOMYCIN HYDROCHLORIDE [Suspect]
     Active Substance: VANCOMYCIN HYDROCHLORIDE
     Indication: Mitochondrial encephalomyopathy
     Route: 065
  10. COENZYME Q10 [Suspect]
     Active Substance: DIETARY SUPPLEMENT\UBIDECARENONE
     Indication: Mitochondrial encephalomyopathy
     Route: 065
  11. IDEBENONE [Suspect]
     Active Substance: IDEBENONE
     Indication: Mitochondrial encephalomyopathy
     Route: 065
  12. VITAMIN B1 [Suspect]
     Active Substance: THIAMINE HYDROCHLORIDE
     Indication: Mitochondrial encephalomyopathy
     Route: 065
  13. VITAMIN B2 [Suspect]
     Active Substance: RIBOFLAVIN
     Indication: Mitochondrial encephalomyopathy
     Route: 065

REACTIONS (1)
  - Condition aggravated [Fatal]
